FAERS Safety Report 6962389-9 (Version None)
Quarter: 2010Q3

REPORT INFORMATION
  Report Type: 
  Country: None (occurrence: None)
  Receive Date: 20100902
  Receipt Date: 20100823
  Transmission Date: 20110219
  Serious: Yes (Hospitalization, Other)
  Sender: FDA-Public Use
  Company Number: US-JNJFOC-20100701386

PATIENT
  Sex: Female
  Weight: 58.06 kg

DRUGS (4)
  1. DOXIL [Suspect]
     Indication: WALDENSTROM'S MACROGLOBULINAEMIA
     Route: 042
  2. DECADRON [Suspect]
     Indication: PREMEDICATION
     Route: 042
  3. ALOXI [Suspect]
     Indication: PREMEDICATION
     Route: 042
  4. VELCADE [Concomitant]
     Route: 065

REACTIONS (2)
  - BLINDNESS TRANSIENT [None]
  - OFF LABEL USE [None]
